FAERS Safety Report 9093228 (Version 1)
Quarter: 2013Q1

REPORT INFORMATION
  Report Type: Spontaneous
  Country: US (occurrence: None)
  Receive Date: 20130213
  Receipt Date: 20130213
  Transmission Date: 20140127
  Serious: Yes (Other)
  Sender: FDA-Public Use
  Company Number: None

PATIENT
  Age: 77 Year
  Sex: Female
  Weight: 135 kg

DRUGS (2)
  1. TEGRETOL [Suspect]
  2. TEGRETOL [Suspect]
     Indication: NEUROPATHY PERIPHERAL

REACTIONS (8)
  - Pruritus [None]
  - Weight decreased [None]
  - Muscle spasms [None]
  - Confusional state [None]
  - Chills [None]
  - Visual impairment [None]
  - Chromaturia [None]
  - Alopecia [None]
